FAERS Safety Report 8459628-4 (Version None)
Quarter: 2012Q2

REPORT INFORMATION
  Report Type: 
  Country: None (occurrence: None)
  Receive Date: 20120622
  Receipt Date: 20120619
  Transmission Date: 20120825
  Serious: Yes (Other)
  Sender: FDA-Public Use
  Company Number: CA-GLAXOSMITHKLINE-A0982012A

PATIENT
  Sex: Male

DRUGS (1)
  1. SENSODYNE-F [Suspect]
     Indication: DENTAL CARE
     Route: 004

REACTIONS (1)
  - ASTHMA [None]
